FAERS Safety Report 14516499 (Version 1)
Quarter: 2018Q1

REPORT INFORMATION
  Report Type: Spontaneous
  Country: US (occurrence: US)
  Receive Date: 20180212
  Receipt Date: 20180212
  Transmission Date: 20180509
  Serious: Yes (Death, Hospitalization, Other)
  Sender: FDA-Public Use
  Company Number: US-VISTAPHARM, INC.-VER201802-000354

PATIENT
  Age: 24 Year
  Sex: Female

DRUGS (1)
  1. HYDROCODONE AND ACETAMINOPHEN [Suspect]
     Active Substance: ACETAMINOPHEN\HYDROCODONE

REACTIONS (10)
  - Cardiotoxicity [Fatal]
  - Toxicity to various agents [Fatal]
  - Blood lactic acid increased [Unknown]
  - Coma [Unknown]
  - Acute hepatic failure [Unknown]
  - Suicide attempt [Unknown]
  - Myocardial necrosis [Unknown]
  - Intentional overdose [Unknown]
  - Metabolic acidosis [Unknown]
  - Distributive shock [Unknown]
